FAERS Safety Report 9667622 (Version 1)
Quarter: 2013Q4

REPORT INFORMATION
  Report Type: Spontaneous
  Country: US (occurrence: US)
  Receive Date: 20131104
  Receipt Date: 20131104
  Transmission Date: 20140711
  Serious: Yes (Disabling)
  Sender: FDA-Public Use
  Company Number: US-PFIZER INC-2013310841

PATIENT
  Age: 58 Year
  Sex: Male
  Weight: 86.17 kg

DRUGS (4)
  1. VIAGRA [Suspect]
     Indication: ERECTILE DYSFUNCTION
     Dosage: 100 MG, AS NEEDED
     Route: 048
     Dates: start: 2000
  2. BABY ASPIRIN [Concomitant]
     Dosage: UNK
  3. XANAX [Concomitant]
     Dosage: UNK
  4. VICODIN [Concomitant]
     Dosage: UNK

REACTIONS (5)
  - Back injury [Not Recovered/Not Resolved]
  - Blood disorder [Unknown]
  - Blood viscosity increased [Unknown]
  - Red blood cell count increased [Unknown]
  - Arthropathy [Not Recovered/Not Resolved]
